FAERS Safety Report 12919849 (Version 1)
Quarter: 2016Q4

REPORT INFORMATION
  Report Type: Spontaneous
  Country: US (occurrence: US)
  Receive Date: 20161108
  Receipt Date: 20161108
  Transmission Date: 20170207
  Serious: Yes (Hospitalization)
  Sender: FDA-Public Use
  Company Number: US-TARO PHARMACEUTICALS USA.,INC-2016SUN00484

PATIENT
  Age: 90 Year
  Sex: Male

DRUGS (12)
  1. WARFARIN [Suspect]
     Active Substance: WARFARIN
     Indication: DEEP VEIN THROMBOSIS
     Dosage: 2 MG, DAILY (DAY 1-3)
     Route: 048
  2. WARFARIN [Interacting]
     Active Substance: WARFARIN
     Dosage: 2 MG BOOST, THEN 25 MG/WEEK (DAY 21-26)
     Route: 048
  3. WARFARIN [Interacting]
     Active Substance: WARFARIN
     Dosage: 1 MG BOOST, THEN 28 MG/WEEK (DAY 27-62)
     Route: 048
  4. TAMSULOSIN [Concomitant]
     Active Substance: TAMSULOSIN
     Dosage: 0.4 MG, OD
     Route: 048
  5. CALCIUM CARBONATE. [Concomitant]
     Active Substance: CALCIUM CARBONATE
     Dosage: 650 MG, OD
     Route: 065
  6. WARFARIN [Interacting]
     Active Substance: WARFARIN
     Dosage: 4 MG, DAILY (DAY 7-15)
     Route: 048
  7. WARFARIN [Interacting]
     Active Substance: WARFARIN
     Dosage: 28 MG/WEEKLY (DAY 66-70)
     Route: 048
  8. CHOLECALCIFEROL [Concomitant]
     Active Substance: CHOLECALCIFEROL
     Dosage: 400 IU, OD
     Route: 065
  9. GEMCITABINE [Interacting]
     Active Substance: GEMCITABINE\GEMCITABINE HYDROCHLORIDE
     Indication: BLADDER CANCER
     Dosage: 2 G (ONE DOSE PER WEEK FOR SIX WEEKS)
     Route: 043
  10. TROSPIUM [Concomitant]
     Active Substance: TROSPIUM
     Dosage: 20 MG, BID
     Route: 048
  11. WARFARIN [Interacting]
     Active Substance: WARFARIN
     Dosage: 3 MG, DAILY (DAY 4-6)
     Route: 048
  12. WARFARIN [Interacting]
     Active Substance: WARFARIN
     Dosage: 25 MG WEEKLY (DAY 16-20)
     Route: 048

REACTIONS (3)
  - International normalised ratio increased [Recovered/Resolved]
  - Muscle haemorrhage [Recovered/Resolved]
  - Drug interaction [Recovered/Resolved]
